FAERS Safety Report 18512837 (Version 2)
Quarter: 2022Q1

REPORT INFORMATION
  Report Type: Spontaneous
  Country: US (occurrence: US)
  Receive Date: 20201117
  Receipt Date: 20220328
  Transmission Date: 20220423
  Serious: Yes (Hospitalization, Other)
  Sender: FDA-Public Use
  Company Number: US-NOVARTISPH-NVSC2020US300676

PATIENT
  Sex: Female

DRUGS (2)
  1. VIVELLE-DOT [Suspect]
     Active Substance: ESTRADIOL
     Indication: Product used for unknown indication
     Dosage: 0.01 MG
     Route: 065
  2. VIVELLE-DOT [Suspect]
     Active Substance: ESTRADIOL
     Dosage: 0.075 MG
     Route: 065

REACTIONS (6)
  - Drug hypersensitivity [Unknown]
  - Coronavirus infection [Unknown]
  - Hormone level abnormal [Unknown]
  - Crying [Unknown]
  - Ill-defined disorder [Unknown]
  - Nausea [Unknown]
